FAERS Safety Report 6741983-4 (Version None)
Quarter: 2010Q2

REPORT INFORMATION
  Report Type: 
  Country: None (occurrence: None)
  Receive Date: 20100524
  Receipt Date: 20091110
  Transmission Date: 20101027
  Serious: Yes (Death)
  Sender: FDA-Public Use
  Company Number: MSTR-NO-1005S-0152

PATIENT
  Age: 65 Year
  Sex: Male
  Weight: 59.3 kg

DRUGS (1)
  1. METASTRON [Suspect]
     Indication: METASTATIC PAIN
     Dosage: SINGLE DOSE, I.V.
     Route: 042
     Dates: start: 20090224, end: 20090224

REACTIONS (1)
  - DEATH [None]
